FAERS Safety Report 20581591 (Version 1)
Quarter: 2022Q1

REPORT INFORMATION
  Report Type: Spontaneous
  Country: CA (occurrence: CA)
  Receive Date: 20220311
  Receipt Date: 20220311
  Transmission Date: 20220423
  Serious: Yes (Other)
  Sender: FDA-Public Use
  Company Number: None

PATIENT
  Sex: Female

DRUGS (4)
  1. GEMCITABINE HYDROCHLORIDE [Suspect]
     Active Substance: GEMCITABINE HYDROCHLORIDE
     Indication: Breast cancer metastatic
     Route: 042
  2. CARBOPLATIN [Concomitant]
     Active Substance: CARBOPLATIN
     Indication: Breast cancer metastatic
     Route: 042
  3. ERIBULIN [Concomitant]
     Active Substance: ERIBULIN
     Indication: Breast cancer metastatic
  4. XELODA [Concomitant]
     Active Substance: CAPECITABINE
     Indication: Breast cancer metastatic

REACTIONS (4)
  - Metastases to liver [Unknown]
  - Metastases to lymph nodes [Unknown]
  - Pericardial effusion [Unknown]
  - Pleural effusion [Unknown]
